FAERS Safety Report 23315453 (Version 1)
Quarter: 2023Q4

REPORT INFORMATION
  Report Type: Report from Study
  Country: US (occurrence: US)
  Receive Date: 20231219
  Receipt Date: 20231219
  Transmission Date: 20240110
  Serious: No
  Sender: FDA-Public Use
  Company Number: US-AstraZeneca-CH-00527016A

PATIENT

DRUGS (2)
  1. SOLIRIS [Suspect]
     Active Substance: ECULIZUMAB
     Indication: Paroxysmal nocturnal haemoglobinuria
     Dosage: UNK
     Route: 041
     Dates: start: 20180501
  2. ULTOMIRIS [Suspect]
     Active Substance: RAVULIZUMAB-CWVZ
     Indication: Product used for unknown indication
     Dosage: UNK
     Route: 065
     Dates: start: 201904

REACTIONS (9)
  - Chronic sinusitis [Unknown]
  - Oropharyngeal candidiasis [Unknown]
  - Ocular rosacea [Unknown]
  - Drug hypersensitivity [Unknown]
  - Mouth breathing [Unknown]
  - Pain threshold decreased [Unknown]
  - Anaemia [Unknown]
  - Asthenia [Unknown]
  - Hypersensitivity [Unknown]

NARRATIVE: CASE EVENT DATE: 20210101
